FAERS Safety Report 24614984 (Version 1)
Quarter: 2024Q4

REPORT INFORMATION
  Report Type: Spontaneous
  Country: IT (occurrence: IT)
  Receive Date: 20241113
  Receipt Date: 20241113
  Transmission Date: 20250115
  Serious: Yes (Other)
  Sender: BRISTOL-MYERS SQUIBB COMPANY
  Company Number: None

PATIENT
  Age: 84 Year
  Sex: Male
  Weight: 63 kg

DRUGS (3)
  1. OPDIVO [Suspect]
     Active Substance: NIVOLUMAB
     Indication: Adenocarcinoma gastric
     Dosage: NIVOLUMAB 240 MG EVERY 14 DAYS?TREATMENT START ON 09/07/2024
     Route: 042
     Dates: start: 20241001, end: 20241001
  2. OPDIVO [Suspect]
     Active Substance: NIVOLUMAB
     Dates: start: 20240709
  3. FLUOROURACIL\LEUCOVORIN CALCIUM\OXALIPLATIN [Concomitant]
     Active Substance: FLUOROURACIL\LEUCOVORIN CALCIUM\OXALIPLATIN
     Indication: Adenocarcinoma gastric
     Dates: start: 20240709

REACTIONS (2)
  - Hypercreatinaemia [Recovered/Resolved]
  - Chronic kidney disease [Recovered/Resolved]

NARRATIVE: CASE EVENT DATE: 20241014
